FAERS Safety Report 5476003-5 (Version None)
Quarter: 2007Q4

REPORT INFORMATION
  Report Type: 
  Country: None (occurrence: None)
  Receive Date: 20071003
  Receipt Date: 20070924
  Transmission Date: 20080405
  Serious: Yes (Hospitalization)
  Sender: FDA-Public Use
  Company Number: FI-ROCHE-521308

PATIENT
  Age: 38 Year
  Sex: Female

DRUGS (4)
  1. INVIRASE [Suspect]
     Indication: HIV INFECTION
     Dosage: FREQUENCY REPORTED AS 2X2
     Route: 048
     Dates: start: 20060611
  2. VIRACEPT [Suspect]
     Indication: HIV INFECTION
     Dosage: FREQUENCY REPORTED AS 5X2
     Route: 048
     Dates: start: 20030618, end: 20070611
  3. NORVIR [Suspect]
     Indication: HIV INFECTION
     Dosage: FREQUENCY REPORTED AS 1X2
     Route: 048
     Dates: start: 20070611
  4. COMBIVIR [Suspect]
     Indication: HIV INFECTION
     Dosage: FREQUENCY REPORTED AS 1X2
     Route: 048
     Dates: start: 20030618

REACTIONS (1)
  - ABORTION SPONTANEOUS [None]
